FAERS Safety Report 14164930 (Version 1)
Quarter: 2017Q4

REPORT INFORMATION
  Report Type: Spontaneous
  Country: PT (occurrence: PT)
  Receive Date: 20171107
  Receipt Date: 20171107
  Transmission Date: 20180321
  Serious: Yes (Death, Hospitalization)
  Sender: FDA-Public Use
  Company Number: PHHY2017PT163049

PATIENT
  Age: 70 Year
  Sex: Female

DRUGS (1)
  1. EXJADE [Suspect]
     Active Substance: DEFERASIROX
     Indication: MYELODYSPLASTIC SYNDROME
     Dosage: 1500 UG, QD
     Route: 048
     Dates: start: 201003, end: 20170906

REACTIONS (4)
  - Pulmonary alveolar haemorrhage [Fatal]
  - Pneumonia [Fatal]
  - Respiratory failure [Fatal]
  - Condition aggravated [Fatal]

NARRATIVE: CASE EVENT DATE: 20170907
